FAERS Safety Report 9482135 (Version 2)
Quarter: 2013Q3

REPORT INFORMATION
  Report Type: Report from Study
  Country: US (occurrence: US)
  Receive Date: 20130828
  Receipt Date: 20130912
  Transmission Date: 20140515
  Serious: Yes (Hospitalization)
  Sender: FDA-Public Use
  Company Number: PHEH2013US018074

PATIENT
  Age: 51 Year
  Sex: Female

DRUGS (5)
  1. GILENYA [Suspect]
     Indication: RELAPSING-REMITTING MULTIPLE SCLEROSIS
     Dosage: 0.5 MG, QD
     Route: 048
     Dates: start: 20110815
  2. KLONOPIN [Concomitant]
     Dosage: 1 MG, PRN
     Route: 048
     Dates: start: 20130905
  3. MOBIC [Concomitant]
     Dosage: 15 MG, QD
     Route: 048
     Dates: start: 20130724
  4. ESCITALOPRAM [Concomitant]
     Dosage: 20 MG, QD
     Route: 048
     Dates: start: 20130516
  5. ZANAFLEX [Concomitant]
     Dosage: 4 MG, TID

REACTIONS (5)
  - Contusion [Not Recovered/Not Resolved]
  - Fall [Recovering/Resolving]
  - Muscular weakness [Not Recovered/Not Resolved]
  - Muscle spasticity [Not Recovered/Not Resolved]
  - Pain in extremity [Recovering/Resolving]
